FAERS Safety Report 8376961-5 (Version None)
Quarter: 2012Q2

REPORT INFORMATION
  Report Type: 
  Country: None (occurrence: None)
  Receive Date: 20120522
  Receipt Date: 20120510
  Transmission Date: 20120825
  Serious: Yes (Other)
  Sender: FDA-Public Use
  Company Number: JP-ELI_LILLY_AND_COMPANY-JP201201005369

PATIENT
  Sex: Male

DRUGS (6)
  1. LASIX [Concomitant]
     Dosage: 20 MG, UNK
     Route: 042
     Dates: start: 20100218, end: 20100218
  2. CISPLATIN [Concomitant]
     Indication: LUNG ADENOCARCINOMA
  3. PANVITAN                           /00466101/ [Concomitant]
     Dosage: 1 G, UNK
     Route: 048
     Dates: start: 20100216
  4. VITAMIN B12 [Concomitant]
     Dosage: 1000 UG, UNK
     Route: 030
     Dates: start: 20100104, end: 20100303
  5. ALIMTA [Suspect]
     Indication: LUNG ADENOCARCINOMA
     Route: 042
  6. EMEND [Concomitant]
     Dosage: 125 MG, UNK
     Route: 048
     Dates: start: 20100216, end: 20100218

REACTIONS (2)
  - HYPERKALAEMIA [None]
  - RENAL IMPAIRMENT [None]
